FAERS Safety Report 9824158 (Version 1)
Quarter: 2014Q1

REPORT INFORMATION
  Report Type: Spontaneous
  Country: US (occurrence: US)
  Receive Date: 20140116
  Receipt Date: 20140116
  Transmission Date: 20141002
  Serious: Yes (Hospitalization)
  Sender: FDA-Public Use
  Company Number: US-GLAXOSMITHKLINE-A1056385A

PATIENT
  Age: 59 Year
  Sex: Male

DRUGS (8)
  1. ADVAIR [Suspect]
     Indication: CHRONIC OBSTRUCTIVE PULMONARY DISEASE
     Dosage: 1PUFF UNKNOWN
     Route: 055
     Dates: start: 2012
  2. BETAMETH [Concomitant]
  3. PRAVASTATIN [Concomitant]
  4. FLUCONAZOLE [Concomitant]
  5. OXYCODONE/APAP [Concomitant]
  6. METOPROLOL [Concomitant]
  7. CLOPIDOGREL [Concomitant]
  8. DOXYCYCLINE [Concomitant]

REACTIONS (3)
  - Pneumonia [Recovering/Resolving]
  - Cough [Recovering/Resolving]
  - Drug administration error [Recovered/Resolved]
